FAERS Safety Report 19734579 (Version 2)
Quarter: 2021Q4

REPORT INFORMATION
  Report Type: Other
  Country: US (occurrence: None)
  Receive Date: 20210824
  Receipt Date: 20211230
  Transmission Date: 20220303
  Serious: Yes (Hospitalization)
  Sender: FDA-Public Use
  Company Number: US-ROCHE-2888648

PATIENT
  Sex: Female
  Weight: 86.260 kg

DRUGS (4)
  1. OCREVUS [Suspect]
     Active Substance: OCRELIZUMAB
     Indication: Relapsing-remitting multiple sclerosis
     Dosage: 02/APR/2021MOST RECENT, PREVIOUS DATE OF TREATMENT = 9/27/2018, 10/11/2018, 3/27/2019, 9/27/2019, 3/
     Route: 042
     Dates: start: 201809
  2. BACLOFEN [Concomitant]
     Active Substance: BACLOFEN
     Indication: Neuralgia
     Dosage: STARTED BEFORE OCREVUS ;
     Route: 048
  3. MELOXICAM [Concomitant]
     Active Substance: MELOXICAM
     Indication: Pain
     Dosage: STARTED BEFORE OCREVUS ; STARTED ABOUT 7 YEARS AGO
     Route: 048
  4. TOLTERODINE TARTRATE [Concomitant]
     Active Substance: TOLTERODINE TARTRATE
     Indication: Urinary incontinence
     Dosage: TAKING FOR ABOUT 20 YEARS,
     Route: 048

REACTIONS (2)
  - COVID-19 [Recovered/Resolved]
  - Alopecia [Not Recovered/Not Resolved]

NARRATIVE: CASE EVENT DATE: 20210101
